FAERS Safety Report 12203957 (Version 1)
Quarter: 2016Q1

REPORT INFORMATION
  Report Type: Spontaneous
  Country: US (occurrence: US)
  Receive Date: 20160323
  Receipt Date: 20160323
  Transmission Date: 20160526
  Serious: No
  Sender: FDA-Public Use
  Company Number: US-MYLANLABS-2015M1014949

PATIENT
  Age: 76 Year
  Sex: Female

DRUGS (2)
  1. VERAPAMIL HYDROCHLORIDE TABLETS, USP [Suspect]
     Active Substance: VERAPAMIL HYDROCHLORIDE
     Indication: HYPERTENSION
     Dosage: 80 MG, BID
     Route: 048
     Dates: start: 20150403, end: 20150406
  2. VERAPAMIL HYDROCHLORIDE TABLETS, USP [Suspect]
     Active Substance: VERAPAMIL HYDROCHLORIDE
     Indication: ARRHYTHMIA
     Dosage: UNK

REACTIONS (4)
  - Dysphonia [Recovered/Resolved]
  - Erythema [Recovered/Resolved]
  - Reaction to drug excipients [Recovered/Resolved]
  - Urticaria [Recovered/Resolved]

NARRATIVE: CASE EVENT DATE: 20150405
